FAERS Safety Report 20315849 (Version 1)
Quarter: 2022Q1

REPORT INFORMATION
  Report Type: Spontaneous
  Country: US (occurrence: None)
  Receive Date: 20220110
  Receipt Date: 20220110
  Transmission Date: 20220423
  Serious: No
  Sender: FDA-Public Use
  Company Number: US-ROCHE-2879548

PATIENT
  Age: 45 Year
  Sex: Female
  Weight: 44.492 kg

DRUGS (4)
  1. RITUXAN [Suspect]
     Active Substance: RITUXIMAB
     Indication: Autoimmune disorder
     Dosage: ONGOING: NO
     Route: 042
     Dates: start: 20210721, end: 20210721
  2. ONDANSETRON [Suspect]
     Active Substance: ONDANSETRON
     Indication: Nausea
     Route: 065
     Dates: start: 20210726
  3. ELIQUIS [Concomitant]
     Active Substance: APIXABAN
  4. BENADRYL [Concomitant]
     Active Substance: DIPHENHYDRAMINE HYDROCHLORIDE
     Route: 048
     Dates: start: 20210722, end: 20210724

REACTIONS (15)
  - Oropharyngeal pain [Unknown]
  - Ear pruritus [Unknown]
  - Headache [Unknown]
  - Urinary tract infection [Recovering/Resolving]
  - Chest pain [Recovering/Resolving]
  - Ear congestion [Recovering/Resolving]
  - Insomnia [Recovering/Resolving]
  - Swelling of eyelid [Unknown]
  - Dizziness [Recovering/Resolving]
  - Pain [Unknown]
  - Myalgia [Unknown]
  - Palpitations [Unknown]
  - Nausea [Unknown]
  - Off label use [Unknown]
  - Malaise [Not Recovered/Not Resolved]

NARRATIVE: CASE EVENT DATE: 20210721
